FAERS Safety Report 13369409 (Version 4)
Quarter: 2017Q2

REPORT INFORMATION
  Report Type: Spontaneous
  Country: US (occurrence: US)
  Receive Date: 20170324
  Receipt Date: 20170630
  Transmission Date: 20170830
  Serious: No
  Sender: FDA-Public Use
  Company Number: US-PFIZER INC-2017123298

PATIENT
  Age: 82 Year
  Sex: Male
  Weight: 88.25 kg

DRUGS (13)
  1. VIAGRA [Suspect]
     Active Substance: SILDENAFIL CITRATE
     Indication: ERECTILE DYSFUNCTION
     Dosage: 25 MG, UNK (SPLIT ANOTHER PILL IN HALF, HE GOT A 25MG PILL)
     Dates: start: 20170318, end: 20170319
  2. LOVAZA [Concomitant]
     Active Substance: OMEGA-3-ACID ETHYL ESTERS
     Indication: DRUG INTERACTION
  3. CENTRUM SILVER [Concomitant]
     Active Substance: MINERALS\VITAMINS
     Dosage: UNK, DAILY (ONE PER DAY)
  4. VIAGRA [Suspect]
     Active Substance: SILDENAFIL CITRATE
     Dosage: 50 MG, UNK
     Dates: start: 20170320
  5. VIAGRA [Suspect]
     Active Substance: SILDENAFIL CITRATE
     Dosage: 25 MG, UNK
     Route: 048
     Dates: start: 20170315
  6. LOVAZA [Concomitant]
     Active Substance: OMEGA-3-ACID ETHYL ESTERS
     Indication: CARDIAC DISORDER
  7. LOVAZA [Concomitant]
     Active Substance: OMEGA-3-ACID ETHYL ESTERS
     Indication: MYOCARDIAL INFARCTION
     Dosage: 2 G, 2X/DAY (1 GRAM, TWO IN THE MORNING AND TWO AT NIGHT)
  8. ECOTRIN [Concomitant]
     Active Substance: ASPIRIN
     Dosage: 81 MG, 2X/DAY
  9. RAMIPRIL. [Concomitant]
     Active Substance: RAMIPRIL
     Dosage: 5 MG, DAILY
  10. REPATHA [Concomitant]
     Active Substance: EVOLOCUMAB
     Indication: LOW DENSITY LIPOPROTEIN INCREASED
     Dosage: UNK (SHOT HE GIVES HIMSELF EVERY TWO WEEKS)
  11. CITRICAL D [Concomitant]
     Dosage: UNK, DAILY (2 PER DAY)
  12. PLAVIX [Concomitant]
     Active Substance: CLOPIDOGREL BISULFATE
     Indication: ANTICOAGULANT THERAPY
     Dosage: 75 MG, 1X/DAY
  13. METOPROLOL SUCCINATE. [Concomitant]
     Active Substance: METOPROLOL SUCCINATE
     Indication: BLOOD PRESSURE ABNORMAL
     Dosage: 25 MG, DAILY

REACTIONS (1)
  - Drug ineffective [Not Recovered/Not Resolved]
